FAERS Safety Report 11342643 (Version 1)
Quarter: 2015Q3

REPORT INFORMATION
  Report Type: Spontaneous
  Country: CH (occurrence: CH)
  Receive Date: 20150805
  Receipt Date: 20150805
  Transmission Date: 20151125
  Serious: Yes (Other)
  Sender: FDA-Public Use
  Company Number: CH-LPDUSPRD-20150589

PATIENT
  Age: 56 Year
  Sex: Female

DRUGS (2)
  1. FERINJECT [Suspect]
     Active Substance: FERRIC CARBOXYMALTOSE
     Dosage: DOSE NOT PROVIDED
     Route: 042
     Dates: start: 20150401
  2. VENOFER [Suspect]
     Active Substance: IRON SUCROSE
     Dosage: DOSE NOT PROVIDED
     Route: 042
     Dates: start: 20150401

REACTIONS (4)
  - Myalgia [Unknown]
  - Tachycardia [Unknown]
  - Vertigo [Unknown]
  - Hypertension [Unknown]

NARRATIVE: CASE EVENT DATE: 20150401
